FAERS Safety Report 25213406 (Version 2)
Quarter: 2025Q3

REPORT INFORMATION
  Report Type: Report from Study
  Country: US (occurrence: US)
  Receive Date: 20250418
  Receipt Date: 20250903
  Transmission Date: 20251021
  Serious: Yes (Other)
  Sender: SANOFI AVENTIS
  Company Number: US-SA-2025SA068047

PATIENT
  Age: 81 Year
  Sex: Male

DRUGS (11)
  1. DUPILUMAB [Suspect]
     Active Substance: DUPILUMAB
     Indication: Asthma
     Dosage: 300 MG, QOW
     Route: 058
     Dates: start: 20250211
  2. ATORVASTATIN [Concomitant]
     Active Substance: ATORVASTATIN
  3. MUCINEX [Concomitant]
     Active Substance: GUAIFENESIN
  4. MONTELUKAST [Concomitant]
     Active Substance: MONTELUKAST
  5. VALSARTAN [Concomitant]
     Active Substance: VALSARTAN
  6. NORVASC [Concomitant]
     Active Substance: AMLODIPINE BESYLATE
  7. WIXELA INHUB [Concomitant]
     Active Substance: FLUTICASONE PROPIONATE\SALMETEROL XINAFOATE
  8. CLOPIDOGREL [Concomitant]
     Active Substance: CLOPIDOGREL BISULFATE
  9. FLUTICASONE [Concomitant]
     Active Substance: FLUTICASONE
  10. DEXTROMETHORPHAN [Concomitant]
     Active Substance: DEXTROMETHORPHAN
  11. SPIRIVA [Concomitant]
     Active Substance: TIOTROPIUM BROMIDE MONOHYDRATE

REACTIONS (5)
  - Syncope [Unknown]
  - Dizziness postural [Unknown]
  - Dizziness [Unknown]
  - Eye pruritus [Unknown]
  - Injury associated with device [Unknown]

NARRATIVE: CASE EVENT DATE: 20250101
